FAERS Safety Report 10143182 (Version 2)
Quarter: 2014Q3

REPORT INFORMATION
  Report Type: Spontaneous
  Country: US (occurrence: US)
  Receive Date: 20140430
  Receipt Date: 20140807
  Transmission Date: 20150326
  Serious: Yes (Other)
  Sender: FDA-Public Use
  Company Number: US-BAYER-2014-063600

PATIENT
  Age: 23 Year
  Sex: Female
  Weight: 49.89 kg

DRUGS (2)
  1. MIRENA [Suspect]
     Active Substance: LEVONORGESTREL
     Indication: CONTRACEPTION
     Dosage: 20 MCG/24HR, CONT
     Route: 015
     Dates: start: 20130513, end: 20130530
  2. MIRENA [Suspect]
     Active Substance: LEVONORGESTREL
     Indication: CONTRACEPTION
     Dosage: 20 MCG/24HR, CONT
     Route: 015
     Dates: start: 201405, end: 201406

REACTIONS (10)
  - Genital haemorrhage [None]
  - Anhedonia [None]
  - Device issue [Recovered/Resolved]
  - Off label use [None]
  - Abdominal pain [Recovered/Resolved]
  - Pain [Recovered/Resolved]
  - Dyspareunia [None]
  - Injury [Recovered/Resolved]
  - Device dislocation [Recovered/Resolved]
  - Scar [None]

NARRATIVE: CASE EVENT DATE: 2014
